FAERS Safety Report 8094495-2 (Version None)
Quarter: 2012Q1

REPORT INFORMATION
  Report Type: 
  Country: None (occurrence: None)
  Receive Date: 20120131
  Receipt Date: 20120123
  Transmission Date: 20120608
  Serious: Yes (Other)
  Sender: FDA-Public Use
  Company Number: JP-PFIZER INC-2012018618

PATIENT
  Age: 77 Year
  Sex: Female

DRUGS (2)
  1. ARICEPT [Concomitant]
     Dosage: UNK
     Route: 048
     Dates: start: 20110101
  2. AROMASIN [Suspect]
     Dosage: UNK
     Route: 048
     Dates: start: 20090101

REACTIONS (3)
  - ABNORMAL BEHAVIOUR [None]
  - COGNITIVE DISORDER [None]
  - SURGERY [None]
